FAERS Safety Report 10252397 (Version 1)
Quarter: 2014Q2

REPORT INFORMATION
  Report Type: Spontaneous
  Country: US (occurrence: None)
  Receive Date: 20140620
  Receipt Date: 20140620
  Transmission Date: 20141212
  Serious: Yes (Other)
  Sender: FDA-Public Use
  Company Number: None

PATIENT
  Age: 76 Year
  Sex: Male
  Weight: 94.4 kg

DRUGS (4)
  1. LENALIDOMIDE 20MG CELGENE [Suspect]
     Indication: WALDENSTROM^S MACROGLOBULINAEMIA
     Dosage: 20 MG DAYS 1-2 PO
     Route: 048
     Dates: start: 200912, end: 201002
  2. RITUXIMAB 820 MG [Suspect]
     Indication: WALDENSTROM^S MACROGLOBULINAEMIA
     Dosage: 820 MG DAY 1 IV
     Route: 042
     Dates: start: 200912, end: 201002
  3. CYCLOPHOSPHAMIDE 550MG [Suspect]
     Dosage: 550 MG PO DAYS 1, 8, 15
     Route: 048
  4. DEXAMETHASONE 40MG [Suspect]
     Dosage: 40 MG PO DAYS 1, 8, 15, 22
     Route: 048

REACTIONS (1)
  - Myelodysplastic syndrome [None]
